FAERS Safety Report 15673851 (Version 1)
Quarter: 2018Q4

REPORT INFORMATION
  Report Type: Spontaneous
  Country: US (occurrence: US)
  Receive Date: 20181129
  Receipt Date: 20181129
  Transmission Date: 20190205
  Serious: Yes (Other)
  Sender: FDA-Public Use
  Company Number: US-PFIZER INC-2018387492

PATIENT
  Sex: Male

DRUGS (1)
  1. FLECTOR [Suspect]
     Active Substance: DICLOFENAC EPOLAMINE
     Dosage: UNK

REACTIONS (5)
  - Headache [Recovering/Resolving]
  - Wrong technique in product usage process [Unknown]
  - Dizziness [Recovering/Resolving]
  - Prostate cancer [Unknown]
  - Swelling [Unknown]
